FAERS Safety Report 21925619 (Version 2)
Quarter: 2023Q2

REPORT INFORMATION
  Report Type: Spontaneous
  Country: US (occurrence: US)
  Receive Date: 20230130
  Receipt Date: 20230613
  Transmission Date: 20230721
  Serious: Yes (Hospitalization, Other)
  Sender: FDA-Public Use
  Company Number: US-SA-SAC20230127001193

PATIENT
  Age: 62 Year
  Sex: Female

DRUGS (2)
  1. KEVZARA [Suspect]
     Active Substance: SARILUMAB
     Indication: Rheumatoid arthritis
     Dosage: 200 MG, QOW
     Route: 058
     Dates: start: 202209
  2. KEVZARA [Suspect]
     Active Substance: SARILUMAB
     Dosage: 200 MG, QOW
     Route: 058

REACTIONS (10)
  - Carditis [Unknown]
  - Vomiting [Unknown]
  - Diarrhoea [Unknown]
  - Anxiety [Unknown]
  - Gastritis [Unknown]
  - Insomnia [Unknown]
  - Headache [Unknown]
  - Feeling hot [Unknown]
  - Nasopharyngitis [Unknown]
  - Inappropriate schedule of product administration [Unknown]
